FAERS Safety Report 9412838 (Version 2)
Quarter: 2013Q3

REPORT INFORMATION
  Report Type: Spontaneous
  Country: DE (occurrence: DE)
  Receive Date: 20130722
  Receipt Date: 20130805
  Transmission Date: 20140515
  Serious: Yes (Death, Hospitalization)
  Sender: FDA-Public Use
  Company Number: GXKR2013DE002449

PATIENT
  Age: 93 Year
  Sex: Female

DRUGS (5)
  1. CITALOPRAM HEXAL [Suspect]
     Dosage: UNK UKN, UNK
     Route: 048
  2. ASS [Concomitant]
  3. TILIDIN [Concomitant]
  4. PANTOZOL [Concomitant]
  5. NOVALGIN                                /SCH/ [Concomitant]

REACTIONS (5)
  - Skin disorder [Fatal]
  - Gastric haemorrhage [Fatal]
  - Thrombocytopenia [Fatal]
  - Skin haemorrhage [Fatal]
  - Aggression [Unknown]
